FAERS Safety Report 24248886 (Version 1)
Quarter: 2024Q3

REPORT INFORMATION
  Report Type: Spontaneous
  Country: US (occurrence: None)
  Receive Date: 20240823
  Receipt Date: 20240823
  Transmission Date: 20241016
  Serious: No
  Sender: Public
  Company Number: None

PATIENT
  Age: 51 Year
  Sex: Female

DRUGS (9)
  1. GAMUNEX-C [Suspect]
     Active Substance: HUMAN IMMUNOGLOBULIN G
     Indication: Myasthenia gravis
     Dosage: OTHER STRENGTH : 40GM/400ML;?
     Dates: start: 20220121
  2. ACETAMINOPHEN [Concomitant]
     Active Substance: ACETAMINOPHEN
  3. DEXTROSE [Concomitant]
     Active Substance: DEXTROSE\DEXTROSE MONOHYDRATE
  4. DIPHENYDRAMINE HCL [Concomitant]
  5. DIPHENHYDRAMINE HYDROCHLO [Concomitant]
  6. EPINEPHRINE [Concomitant]
     Active Substance: EPINEPHRINE
  7. FLURARIX QUAD [Concomitant]
  8. FOLIC ACID [Concomitant]
     Active Substance: FOLIC ACID
  9. GAMUNEX-C [Concomitant]
     Active Substance: HUMAN IMMUNOGLOBULIN G

REACTIONS (1)
  - Breast cancer [None]

NARRATIVE: CASE EVENT DATE: 20240708
